FAERS Safety Report 9201049 (Version 1)
Quarter: 2013Q2

REPORT INFORMATION
  Report Type: Report from Study
  Country: CA (occurrence: CA)
  Receive Date: 20130401
  Receipt Date: 20130401
  Transmission Date: 20140414
  Serious: Yes (Other)
  Sender: FDA-Public Use
  Company Number: CA-JNJFOC-20130314940

PATIENT
  Age: 64 Year
  Sex: Male
  Weight: 84 kg

DRUGS (8)
  1. REMICADE [Suspect]
     Indication: ARTHRITIS
     Dosage: 0-2-6 WEEKS AND THEN ONCE IN 8 WEEKS
     Route: 042
     Dates: start: 2002
  2. REMICADE [Suspect]
     Indication: ARTHRITIS
     Route: 042
     Dates: start: 20130321
  3. REMICADE [Suspect]
     Indication: ARTHRITIS
     Dosage: ONCE IN 2WEEKS, ONCE IN 6 WEEKS AND ONCE IN 8 WEEKS
     Route: 042
     Dates: start: 20130305
  4. REMICADE [Suspect]
     Indication: PSORIASIS
     Dosage: ONCE IN 2WEEKS, ONCE IN 6 WEEKS AND ONCE IN 8 WEEKS
     Route: 042
     Dates: start: 20130305
  5. REMICADE [Suspect]
     Indication: PSORIASIS
     Route: 042
     Dates: start: 20130321
  6. REMICADE [Suspect]
     Indication: PSORIASIS
     Dosage: 0-2-6 WEEKS AND THEN ONCE IN 8 WEEKS
     Route: 042
     Dates: start: 2002
  7. TYLENOL [Concomitant]
     Route: 050
  8. BENADRYL [Concomitant]
     Route: 042

REACTIONS (5)
  - Hypertension [Recovered/Resolved]
  - Oxygen saturation decreased [Recovered/Resolved]
  - Infusion related reaction [Recovered/Resolved]
  - Headache [Recovered/Resolved]
  - Tremor [Recovered/Resolved]
